FAERS Safety Report 13981574 (Version 1)
Quarter: 2017Q3

REPORT INFORMATION
  Report Type: Spontaneous
  Country: US (occurrence: US)
  Receive Date: 20170917
  Receipt Date: 20170917
  Transmission Date: 20171128
  Serious: No
  Sender: FDA-Public Use
  Company Number: None

PATIENT
  Age: 53 Year
  Weight: 54 kg

DRUGS (1)
  1. ESCITALOPRAM [Suspect]
     Active Substance: ESCITALOPRAM OXALATE
     Indication: MENOPAUSAL SYMPTOMS
     Dosage: ?          QUANTITY:30 TABLET(S);?
     Route: 048
     Dates: start: 20170821, end: 20170821

REACTIONS (9)
  - Suicidal ideation [None]
  - Anxiety [None]
  - Dyspnoea [None]
  - Panic reaction [None]
  - Paraesthesia [None]
  - Swollen tongue [None]
  - Palpitations [None]
  - Dry mouth [None]
  - Decreased appetite [None]

NARRATIVE: CASE EVENT DATE: 20170821
